FAERS Safety Report 15066477 (Version 2)
Quarter: 2018Q2

REPORT INFORMATION
  Report Type: Spontaneous
  Country: US (occurrence: US)
  Receive Date: 20180626
  Receipt Date: 20180629
  Transmission Date: 20180711
  Serious: Yes (Other)
  Sender: FDA-Public Use
  Company Number: US-PFIZER INC-2017239261

PATIENT
  Age: 71 Year
  Sex: Male

DRUGS (1)
  1. DOCETAXEL. [Suspect]
     Active Substance: DOCETAXEL
     Indication: PROSTATE CANCER METASTATIC
     Dosage: UNK

REACTIONS (7)
  - Skin hypertrophy [Unknown]
  - Oedema peripheral [Unknown]
  - Pain in extremity [Unknown]
  - Muscle tightness [Unknown]
  - Skin fibrosis [Unknown]
  - Erythema [Unknown]
  - Scleroderma [Unknown]
